FAERS Safety Report 9916685 (Version 1)
Quarter: 2014Q1

REPORT INFORMATION
  Report Type: Report from Study
  Country: JP (occurrence: JP)
  Receive Date: 20140221
  Receipt Date: 20140221
  Transmission Date: 20141002
  Serious: Yes (Death, Other)
  Sender: FDA-Public Use
  Company Number: JP-TAKEDA-2014TJP001691

PATIENT
  Age: 85 Year
  Sex: Male
  Weight: 43 kg

DRUGS (4)
  1. LANSOPRAZOLE [Suspect]
     Indication: PROPHYLAXIS AGAINST GASTROINTESTINAL ULCER
     Dosage: 15 MG, QD
     Route: 048
     Dates: start: 20120823, end: 20121127
  2. BAYASPIRIN [Concomitant]
     Indication: THROMBOSIS PROPHYLAXIS
     Dosage: 100 MG, 1 DAY
     Route: 048
  3. AMLODIN [Concomitant]
     Dosage: 2.5 MG, 1 DAY
     Route: 048
  4. MUCOSOLATE L [Concomitant]
     Dosage: 45 MG, 1 DAY
     Route: 048

REACTIONS (2)
  - Pneumonia [Fatal]
  - Cardiac failure [Fatal]
